FAERS Safety Report 9270922 (Version 1)
Quarter: 2013Q2

REPORT INFORMATION
  Report Type: Spontaneous
  Country: BE (occurrence: BE)
  Receive Date: 20130506
  Receipt Date: 20130506
  Transmission Date: 20140414
  Serious: Yes (Hospitalization, Other)
  Sender: FDA-Public Use
  Company Number: BE-PFIZER INC-2013019260

PATIENT
  Age: 44 Year
  Sex: Male

DRUGS (11)
  1. MEDROL [Suspect]
     Indication: ASTHMA
     Dosage: 32 MG, 1X/DAY
     Route: 048
     Dates: start: 20120118
  2. GLUCOPHAGE [Concomitant]
     Indication: INSULIN RESISTANCE
     Dosage: 500 MG, 2X/DAY
     Route: 048
  3. ZALDIAR [Concomitant]
     Dosage: 1 DF, 1X/DAY
     Route: 048
  4. BURINEX [Concomitant]
     Dosage: 5 MG, 1X/DAY
     Route: 048
  5. ALDACTONE [Concomitant]
     Dosage: 100 MG, 1X/DAY
     Route: 048
  6. INUVAIR [Concomitant]
     Indication: ASTHMA
     Dosage: UNK
     Route: 055
  7. VENTOLIN [Concomitant]
     Dosage: UNK
     Route: 055
  8. PANTOMED [Concomitant]
     Dosage: 40 MG, 2X/DAY
  9. BREXINE [Concomitant]
     Dosage: 2 MG, 1X/DAY
  10. D-CURE [Concomitant]
     Dosage: 1 DF, WEEKLY
  11. VALTRAN [Concomitant]
     Dosage: 4 GTT, 1X/DAY

REACTIONS (6)
  - Cushing^s syndrome [Unknown]
  - Localised oedema [Unknown]
  - Dyspnoea [Unknown]
  - Skin striae [Unknown]
  - Myopathy [Unknown]
  - Insulin resistance [Unknown]
